FAERS Safety Report 24909063 (Version 2)
Quarter: 2025Q3

REPORT INFORMATION
  Report Type: Spontaneous
  Country: US (occurrence: US)
  Receive Date: 20250131
  Receipt Date: 20250905
  Transmission Date: 20251020
  Serious: Yes (Other)
  Sender: DOMPE FARMACEUTICI
  Company Number: US-FARMAPROD-202501-0065

PATIENT
  Sex: Female

DRUGS (15)
  1. OXERVATE [Suspect]
     Active Substance: CENEGERMIN-BKBJ
     Indication: Neurotrophic keratopathy
     Route: 047
     Dates: start: 20241226
  2. OXERVATE [Suspect]
     Active Substance: CENEGERMIN-BKBJ
     Indication: Ulcerative keratitis
  3. OXERVATE [Suspect]
     Active Substance: CENEGERMIN-BKBJ
     Indication: Hypoaesthesia eye
  4. RESTASIS [Concomitant]
     Active Substance: CYCLOSPORINE
  5. ACYCLOVIR [Concomitant]
     Active Substance: ACYCLOVIR
  6. FISH OIL [Concomitant]
     Active Substance: FISH OIL
  7. CINNAMON [Concomitant]
     Active Substance: CINNAMON
  8. MENAQUINONE 6 [Concomitant]
     Active Substance: MENAQUINONE 6
  9. CHROMIUM PICOLINATE [Concomitant]
     Active Substance: CHROMIUM PICOLINATE
  10. FLONASE ALLERGY RELIEF [Concomitant]
     Active Substance: FLUTICASONE PROPIONATE
  11. VITAMINS [Concomitant]
     Active Substance: VITAMINS
  12. ASPIRIN [Concomitant]
     Active Substance: ASPIRIN
  13. METFORMIN HYDROCHLORIDE [Concomitant]
     Active Substance: METFORMIN HYDROCHLORIDE
  14. HYDROCHLOROTHIAZIDE [Concomitant]
     Active Substance: HYDROCHLOROTHIAZIDE
  15. LOSARTAN POTASSIUM [Concomitant]
     Active Substance: LOSARTAN POTASSIUM

REACTIONS (4)
  - Pneumonia [Recovering/Resolving]
  - Eye pain [Unknown]
  - Ocular hyperaemia [Unknown]
  - Nasopharyngitis [Unknown]
